FAERS Safety Report 16717850 (Version 1)
Quarter: 2019Q3

REPORT INFORMATION
  Report Type: Spontaneous
  Country: US (occurrence: US)
  Receive Date: 20190819
  Receipt Date: 20190819
  Transmission Date: 20191005
  Serious: Yes (Hospitalization)
  Sender: FDA-Public Use
  Company Number: US-THE PROACTIV LLC-2073335

PATIENT
  Age: 53 Year
  Sex: Female

DRUGS (5)
  1. PROACTIV SOLUTION BLACKHEAD DISSOLVING [Suspect]
     Active Substance: SALICYLIC ACID
     Indication: SKIN DISORDER
     Route: 061
     Dates: start: 201905, end: 20190725
  2. PROACTIV DEEP CLEANSING WASH [Suspect]
     Active Substance: SALICYLIC ACID
     Route: 061
     Dates: start: 201905, end: 20190725
  3. PROACTIV MD ADAPALENE ACNE TREATMENT [Concomitant]
     Active Substance: ADAPALENE
     Route: 061
     Dates: start: 201905, end: 20190725
  4. PROACTIV MD DAILY OIL CONTROL SPF 30 [Concomitant]
     Active Substance: AVOBENZONE\OCTISALATE\OCTOCRYLENE
     Route: 061
     Dates: start: 201905, end: 20190725
  5. PROACTIV MD DEEP CLEANSING FACE WASH [Suspect]
     Active Substance: COSMETICS
     Route: 061
     Dates: start: 201905, end: 20190725

REACTIONS (5)
  - Swelling of eyelid [Recovering/Resolving]
  - Hypersensitivity [Recovering/Resolving]
  - Erythema of eyelid [Recovering/Resolving]
  - Dyspnoea [Recovering/Resolving]
  - Swelling face [Recovering/Resolving]

NARRATIVE: CASE EVENT DATE: 20190725
